FAERS Safety Report 4777213-2 (Version None)
Quarter: 2005Q3

REPORT INFORMATION
  Report Type: 
  Country: None (occurrence: None)
  Receive Date: 20050923
  Receipt Date: 20050909
  Transmission Date: 20060218
  Serious: Yes (Other)
  Sender: FDA-Public Use
  Company Number: PHFR2005GB03010

PATIENT
  Age: 46 Year
  Sex: Male

DRUGS (1)
  1. CLOZARIL [Suspect]
     Indication: BIPOLAR DISORDER
     Dosage: 50 MG/DAY
     Route: 048
     Dates: start: 20050901, end: 20050906

REACTIONS (5)
  - AGITATION [None]
  - ANXIETY [None]
  - ELECTROCARDIOGRAM QT CORRECTED INTERVAL PROLONGED [None]
  - MALAISE [None]
  - TACHYCARDIA [None]
